FAERS Safety Report 7238781-4 (Version None)
Quarter: 2011Q1

REPORT INFORMATION
  Report Type: 
  Country: None (occurrence: None)
  Receive Date: 20110121
  Receipt Date: 20110117
  Transmission Date: 20110831
  Serious: Yes (Other)
  Sender: FDA-Public Use
  Company Number: IN-PFIZER INC-2011011510

PATIENT
  Age: 28 Year
  Sex: Male

DRUGS (4)
  1. PREDNISOLONE [Concomitant]
     Indication: SERUM SICKNESS
     Dosage: 1 MG/KG, UNK
     Route: 048
  2. FLUCONAZOLE [Concomitant]
     Indication: PROPHYLAXIS
  3. ATGAM [Suspect]
     Indication: APLASTIC ANAEMIA
     Dosage: 40 MG/KG, UNK
     Route: 042
  4. LEVOFLOXACIN [Concomitant]
     Indication: PROPHYLAXIS

REACTIONS (12)
  - PYREXIA [None]
  - ABDOMINAL DISCOMFORT [None]
  - BLOOD CREATININE INCREASED [None]
  - CHILLS [None]
  - OLIGURIA [None]
  - NAUSEA [None]
  - DECREASED APPETITE [None]
  - ABDOMINAL DISTENSION [None]
  - HYPERTENSION [None]
  - RENAL DISORDER [None]
  - RENAL IMPAIRMENT [None]
  - MALAISE [None]
